FAERS Safety Report 7023700-6 (Version None)
Quarter: 2010Q4

REPORT INFORMATION
  Report Type: 
  Country: None (occurrence: None)
  Receive Date: 20101001
  Receipt Date: 20100412
  Transmission Date: 20110411
  Serious: Yes (Other)
  Sender: FDA-Public Use
  Company Number: US-ASTRAZENECA-2009UW17283

PATIENT
  Sex: Female
  Weight: 86.2 kg

DRUGS (8)
  1. SEROQUEL [Suspect]
     Dosage: 300 MG TO 600 MG
     Route: 048
     Dates: start: 20051027
  2. TRICOR [Concomitant]
     Route: 048
     Dates: start: 20040318
  3. ZETIA [Concomitant]
     Route: 048
     Dates: start: 20040318
  4. ZOLOFT [Concomitant]
     Dosage: 100 MG TO 200 MG
     Dates: start: 20040318
  5. DEPAKOTE ER [Concomitant]
     Dates: start: 20040318
  6. ABILIFY [Concomitant]
     Dosage: 2 MG TO 15 MG
     Dates: start: 20080425
  7. LEXAPRO [Concomitant]
     Dates: start: 20051027
  8. EFFEXOR XR [Concomitant]
     Dates: start: 20051027

REACTIONS (2)
  - NEUROPATHY PERIPHERAL [None]
  - TYPE 2 DIABETES MELLITUS [None]
